FAERS Safety Report 21239291 (Version 1)
Quarter: 2022Q3

REPORT INFORMATION
  Report Type: Spontaneous
  Country: US (occurrence: None)
  Receive Date: 20220819
  Receipt Date: 20220819
  Transmission Date: 20221026
  Serious: Yes (Death)
  Sender: FDA-Public Use
  Company Number: None

PATIENT
  Age: 92 Year
  Sex: Male

DRUGS (20)
  1. NUPLAZID [Suspect]
     Active Substance: PIMAVANSERIN TARTRATE
     Indication: Hallucination
     Dosage: FREQUENCY : DAILY;?
     Route: 048
     Dates: start: 20220720, end: 20220801
  2. ACETAMINOPHEN 650MG [Concomitant]
  3. LORAZEPAM [Concomitant]
     Active Substance: LORAZEPAM
  4. TRANSDERM PATCH [Concomitant]
  5. MORPHINE SULFATE [Concomitant]
     Active Substance: MORPHINE SULFATE
  6. ATROPINE SULFATE EYE DROPS [Concomitant]
  7. ROBITUSSIN COUGH AND CONGESTION [Concomitant]
  8. TRAZODONE [Concomitant]
     Active Substance: TRAZODONE HYDROCHLORIDE
  9. DONEPEZIL [Concomitant]
     Active Substance: DONEPEZIL
  10. QUETIAPINE [Concomitant]
     Active Substance: QUETIAPINE
  11. ONDANSETRON [Concomitant]
     Active Substance: ONDANSETRON
  12. BENZONATATE [Concomitant]
     Active Substance: BENZONATATE
  13. DOXYCYCLINE [Concomitant]
     Active Substance: DOXYCYCLINE
  14. TRAMADOL [Concomitant]
     Active Substance: TRAMADOL
  15. BACTRIM [Concomitant]
     Active Substance: SULFAMETHOXAZOLE\TRIMETHOPRIM
  16. CARBIDOPA\LEVODOPA [Concomitant]
     Active Substance: CARBIDOPA\LEVODOPA
  17. MYRBETRIQ [Concomitant]
     Active Substance: MIRABEGRON
  18. CYMBALTA [Concomitant]
     Active Substance: DULOXETINE HYDROCHLORIDE
  19. FLOMAX [Concomitant]
     Active Substance: TAMSULOSIN HYDROCHLORIDE
  20. NAUPRO [Concomitant]

REACTIONS (1)
  - Death [None]

NARRATIVE: CASE EVENT DATE: 20220819
